FAERS Safety Report 6254054-0 (Version None)
Quarter: 2009Q3

REPORT INFORMATION
  Report Type: 
  Country: None (occurrence: None)
  Receive Date: 20090702
  Receipt Date: 20090629
  Transmission Date: 20100115
  Serious: Yes (Other)
  Sender: FDA-Public Use
  Company Number: GB-ROXANE LABORATORIES, INC.-2009-RO-00628RO

PATIENT
  Age: 43 Year
  Sex: Female

DRUGS (3)
  1. TOPIRAMATE [Suspect]
     Indication: MIGRAINE
     Dosage: 25 MG
  2. PROPRANOLOL HYDROCHLORIDE [Suspect]
     Indication: MIGRAINE
     Dosage: 40 MG
  3. AMITRIPTYLINE HCL [Suspect]
     Indication: MIGRAINE
     Dosage: 10 MG

REACTIONS (1)
  - RETINAL DETACHMENT [None]
